FAERS Safety Report 16660304 (Version 1)
Quarter: 2019Q3

REPORT INFORMATION
  Report Type: Spontaneous
  Country: BE (occurrence: BE)
  Receive Date: 20190802
  Receipt Date: 20190802
  Transmission Date: 20191004
  Serious: Yes (Hospitalization)
  Sender: FDA-Public Use
  Company Number: BE-TEVA-2019-BE-1085837

PATIENT
  Age: 38 Year
  Sex: Female

DRUGS (2)
  1. OXALIPLATIN. [Suspect]
     Active Substance: OXALIPLATIN
     Dosage: PRIOR ADMINISTRATION DATES: 20/02/19, 05/03/19, 27/03/19, 17/04/19, 30/04/19, 15/05/19, 04/06/19, 11
     Route: 042
  2. FLURACEDYL [Concomitant]
     Active Substance: FLUOROURACIL
     Dosage: 519 + 3891 MG?PRIOR ADMINISTRATION DATES: 20/02/19, 05/03/19, 27/03/19, 17/04/19, 30/04/19, 15/05/19
     Route: 042

REACTIONS (6)
  - Aphonia [Recovered/Resolved]
  - Bronchospasm [Recovered/Resolved]
  - Oxygen saturation decreased [Recovered/Resolved]
  - Hypersensitivity [Recovered/Resolved]
  - Pruritus [Recovered/Resolved]
  - Rash [Recovered/Resolved]

NARRATIVE: CASE EVENT DATE: 20190619
